FAERS Safety Report 18143566 (Version 1)
Quarter: 2020Q3

REPORT INFORMATION
  Report Type: Spontaneous
  Country: CN (occurrence: CN)
  Receive Date: 20200812
  Receipt Date: 20200812
  Transmission Date: 20201103
  Serious: Yes (Other)
  Sender: FDA-Public Use
  Company Number: CN-BAXTER-2020BAX016269

PATIENT
  Age: 72 Year
  Sex: Male
  Weight: 70 kg

DRUGS (2)
  1. ENDOXAN [Suspect]
     Active Substance: CYCLOPHOSPHAMIDE
     Indication: NON-HODGKIN^S LYMPHOMA
     Dosage: CYCLOPHOSPHAMIDE 0.6 G + 0.9% NS 100 ML
     Route: 041
     Dates: start: 20200715, end: 20200715
  2. 0.9% SODIUM CHLORIDE INJECTION [Suspect]
     Active Substance: SODIUM CHLORIDE
     Indication: MEDICATION DILUTION
     Dosage: CYCLOPHOSPHAMIDE 0.6 G + 0.9% NS 100 ML
     Route: 041
     Dates: start: 20200715, end: 20200715

REACTIONS (2)
  - Chills [Recovering/Resolving]
  - Discomfort [Recovered/Resolved]

NARRATIVE: CASE EVENT DATE: 20200715
